FAERS Safety Report 5644654-0 (Version None)
Quarter: 2008Q1

REPORT INFORMATION
  Report Type: 
  Country: None (occurrence: None)
  Receive Date: 20080229
  Receipt Date: 20070601
  Transmission Date: 20080703
  Serious: No
  Sender: FDA-Public Use
  Company Number: A0650431A

PATIENT
  Age: 55 Year
  Sex: Male

DRUGS (2)
  1. VALTREX [Suspect]
     Indication: HERPES ZOSTER
     Dosage: 1G THREE TIMES PER DAY
     Route: 048
     Dates: start: 20070501, end: 20070501
  2. HYDROXYCHLOROQUINE SULFATE [Concomitant]

REACTIONS (5)
  - LYMPH NODE PAIN [None]
  - LYMPHADENOPATHY [None]
  - NODULE [None]
  - ODYNOPHAGIA [None]
  - PAIN [None]
